FAERS Safety Report 6842319 (Version 5)
Quarter: 2018Q3

REPORT INFORMATION
  Report Type: Report from Study
  Country: JP (occurrence: JP)
  Receive Date: 20081211
  Receipt Date: 20180730
  Transmission Date: 20181010
  Serious: Yes (Hospitalization, Disabling, Congenital Anomaly)
  Sender: FDA-Public Use
  Company Number: JP-PFIZER INC-2008150256

PATIENT
  Age: 35 Year
  Sex: Female
  Weight: 60 kg

DRUGS (32)
  1. LIPITOR [Suspect]
     Active Substance: ATORVASTATIN CALCIUM
     Indication: BLOOD CHOLESTEROL INCREASED
     Dosage: 10 MG, 1X/DAY
     Route: 048
     Dates: start: 20090912
  2. PREDNISOLONE. [Suspect]
     Active Substance: PREDNISOLONE
     Dosage: 25 MG, 1X/DAY
     Route: 048
     Dates: start: 20110415
  3. REMICADE [Suspect]
     Active Substance: INFLIXIMAB
     Dosage: 200 MG, 1X/DAY
     Route: 065
     Dates: start: 20080314, end: 20080314
  4. PREDNISOLONE. [Suspect]
     Active Substance: PREDNISOLONE
     Dosage: 25 MG, 1X/DAY
     Route: 048
     Dates: start: 20080509, end: 20080711
  5. PREDNISOLONE. [Suspect]
     Active Substance: PREDNISOLONE
     Dosage: 30 MG, 1X/DAY
     Route: 048
     Dates: start: 20091107, end: 20100115
  6. PREDNISOLONE. [Suspect]
     Active Substance: PREDNISOLONE
     Dosage: 25 MG, 1X/DAY
     Route: 048
     Dates: start: 20100403, end: 20100624
  7. ONEALFA [Suspect]
     Active Substance: ALFACALCIDOL
     Indication: OSTEOPOROSIS
     Dosage: 0.5 UG, 1X/DAY
     Route: 048
  8. NU LOTAN [Suspect]
     Active Substance: LOSARTAN
     Indication: LUPUS NEPHRITIS
     Dosage: 50 MG, 1X/DAY
     Route: 048
     Dates: start: 20080305, end: 20090911
  9. PREDNISOLONE. [Suspect]
     Active Substance: PREDNISOLONE
     Indication: LUPUS NEPHRITIS
     Dosage: 20 MG, 1X/DAY
     Route: 048
     Dates: end: 20070816
  10. REMICADE [Suspect]
     Active Substance: INFLIXIMAB
     Indication: LUPUS NEPHRITIS
     Dosage: 200 MG, 1X/DAY
     Route: 065
     Dates: start: 20080229, end: 20080229
  11. PREDNISOLONE. [Suspect]
     Active Substance: PREDNISOLONE
     Dosage: 30 MG, 1X/DAY
     Route: 048
     Dates: start: 20070817, end: 20071206
  12. PREDNISOLONE. [Suspect]
     Active Substance: PREDNISOLONE
     Dosage: 25 MG, 1X/DAY
     Route: 048
     Dates: start: 20071207, end: 20080104
  13. PREDNISOLONE. [Suspect]
     Active Substance: PREDNISOLONE
     Dosage: 40 MG, 1X/DAY
     Route: 048
     Dates: start: 20090808, end: 20091009
  14. PREDNISOLONE. [Suspect]
     Active Substance: PREDNISOLONE
     Dosage: 30 MG, 1X/DAY
     Route: 048
     Dates: start: 20100116, end: 20100402
  15. ENDOXAN [Concomitant]
     Active Substance: CYCLOPHOSPHAMIDE
     Indication: SYSTEMIC LUPUS ERYTHEMATOSUS
     Dosage: UNK
     Route: 065
  16. PROGRAF [Suspect]
     Active Substance: TACROLIMUS\TACROLIMUS ANHYDROUS
     Indication: LUPUS NEPHRITIS
     Dosage: 2 MG, 1X/DAY
     Dates: start: 20070419, end: 20070530
  17. PREDNISOLONE. [Suspect]
     Active Substance: PREDNISOLONE
     Dosage: 30 MG, 1X/DAY
     Route: 048
     Dates: start: 20080105, end: 20080508
  18. NU LOTAN [Suspect]
     Active Substance: LOSARTAN
     Indication: HYPERTENSION
     Dosage: 25 MG, 1X/DAY
     Route: 048
     Dates: end: 20080304
  19. REMICADE [Suspect]
     Active Substance: INFLIXIMAB
     Dosage: 200 MG, 1X/DAY
     Route: 065
     Dates: start: 20080410, end: 20080410
  20. PREMINENT [Concomitant]
     Active Substance: HYDROCHLOROTHIAZIDE\LOSARTAN POTASSIUM
     Indication: OEDEMA
  21. LOSARTAN POTASSIUM AND HYDROCHLOROTHIAZIDE [Concomitant]
     Active Substance: HYDROCHLOROTHIAZIDE\LOSARTAN POTASSIUM
     Indication: LUPUS NEPHRITIS
     Dosage: 1 DF, 1X/DAY
     Route: 048
     Dates: start: 20090912
  22. PROGRAF [Suspect]
     Active Substance: TACROLIMUS\TACROLIMUS ANHYDROUS
     Dosage: 3 MG, 1X/DAY
     Dates: start: 20070531
  23. PREDNISOLONE. [Suspect]
     Active Substance: PREDNISOLONE
     Dosage: 20 MG, 1X/DAY
     Route: 048
     Dates: start: 20080712, end: 20090212
  24. PREDNISOLONE. [Suspect]
     Active Substance: PREDNISOLONE
     Dosage: 30 MG, 1X/DAY
     Route: 048
     Dates: start: 20090213, end: 20090807
  25. PREDNISOLONE. [Suspect]
     Active Substance: PREDNISOLONE
     Dosage: 22.5 MG, 1X/DAY
     Route: 048
     Dates: start: 20100625, end: 20110414
  26. NU LOTAN [Suspect]
     Active Substance: LOSARTAN
     Indication: BLOOD PRESSURE INCREASED
  27. LIPITOR [Suspect]
     Active Substance: ATORVASTATIN CALCIUM
     Indication: HYPERLIPIDAEMIA
     Dosage: 5 MG, 1X/DAY
     Route: 048
     Dates: end: 20090911
  28. TAGAMET [Suspect]
     Active Substance: CIMETIDINE
     Indication: CHRONIC GASTRITIS
     Dosage: 200 MG, 1X/DAY
     Route: 048
     Dates: end: 20080309
  29. PREMINENT [Concomitant]
     Active Substance: HYDROCHLOROTHIAZIDE\LOSARTAN POTASSIUM
     Indication: LUPUS NEPHRITIS
     Dosage: 62.5 MG, 1X/DAY
     Route: 048
     Dates: start: 20090912, end: 20110304
  30. PREMINENT [Concomitant]
     Active Substance: HYDROCHLOROTHIAZIDE\LOSARTAN POTASSIUM
     Indication: HYPERTENSION
  31. PREDNISOLONE. [Suspect]
     Active Substance: PREDNISOLONE
     Dosage: 35 MG, 1X/DAY
     Route: 048
     Dates: start: 20091010, end: 20091106
  32. ISCOTIN [Suspect]
     Active Substance: ISONIAZID
     Indication: PROPHYLAXIS
     Dosage: 300 MG, 1X/DAY
     Route: 048
     Dates: start: 20080229, end: 20080711

REACTIONS (17)
  - Renal impairment [Not Recovered/Not Resolved]
  - Lupus nephritis [Recovering/Resolving]
  - Hypertension [Recovering/Resolving]
  - Oedema [Recovered/Resolved]
  - Irritability [Recovered/Resolved]
  - Muscle spasms [Recovered/Resolved]
  - Systemic lupus erythematosus [Recovering/Resolving]
  - Increased appetite [Recovered/Resolved]
  - Glucose urine present [Recovered/Resolved]
  - White blood cell count decreased [Recovered/Resolved]
  - Unevaluable event [None]
  - Drug ineffective [Unknown]
  - Platelet count decreased [Recovered/Resolved]
  - Blood pressure increased [Recovered/Resolved]
  - Abortion missed [Recovered/Resolved]
  - Exposure during pregnancy [Unknown]
  - Blood cholesterol increased [Recovered/Resolved]

NARRATIVE: CASE EVENT DATE: 20080105
